FAERS Safety Report 26053562 (Version 1)
Quarter: 2025Q4

REPORT INFORMATION
  Report Type: Spontaneous
  Country: US (occurrence: None)
  Receive Date: 20251117
  Receipt Date: 20251117
  Transmission Date: 20260117
  Serious: Yes (Death)
  Sender: FDA-CTU
  Company Number: None

PATIENT
  Sex: Male

DRUGS (9)
  1. XDEMVY [Suspect]
     Active Substance: LOTILANER
     Indication: Blepharitis
     Dosage: OTHER FREQUENCY : TWICE DAILY INTO BOTH EYES;?
     Route: 047
     Dates: start: 20250617
  2. ATIVAN [Concomitant]
     Active Substance: LORAZEPAM
  3. ELIQUIS [Concomitant]
     Active Substance: APIXABAN
  4. FUROSEMIDE [Concomitant]
     Active Substance: FUROSEMIDE
  5. MEMANTINE [Concomitant]
     Active Substance: MEMANTINE
  6. ONE-A-DAY 50+ ADV [Concomitant]
  7. POTASSIUM POW [Concomitant]
  8. RIVASTIGMINE [Concomitant]
     Active Substance: RIVASTIGMINE
  9. VITAMIN D3 [Concomitant]
     Active Substance: CHOLECALCIFEROL

REACTIONS (1)
  - Death [None]
